FAERS Safety Report 17678507 (Version 1)
Quarter: 2020Q2

REPORT INFORMATION
  Report Type: Spontaneous
  Country: DE (occurrence: DE)
  Receive Date: 20200417
  Receipt Date: 20200417
  Transmission Date: 20200714
  Serious: Yes (Congenital Anomaly)
  Sender: FDA-Public Use
  Company Number: DE-DRREDDYS-GER/GER/20/0121886

PATIENT
  Age: 0 Year
  Sex: Male
  Weight: 3.47 kg

DRUGS (3)
  1. CITALOPRAM [Suspect]
     Active Substance: CITALOPRAM HYDROBROMIDE
     Indication: PRODUCT USED FOR UNKNOWN INDICATION
     Dosage: 20 [MG/D (BIS 10 MG/D) ]/ USUALLY 10 MG/D. ONLY FROM WEEK 5 UNTIL 14: 20 MG/D.
     Route: 064
     Dates: start: 20181110, end: 20190729
  2. CLEXANE [Concomitant]
     Active Substance: ENOXAPARIN SODIUM
     Indication: PRODUCT USED FOR UNKNOWN INDICATION
     Route: 064
  3. FOLSAEURE [Concomitant]
     Active Substance: FOLIC ACID
     Indication: PROPHYLAXIS OF NEURAL TUBE DEFECT
     Dosage: 0.4 [MG/D ]
     Route: 064
     Dates: start: 20181110, end: 20190729

REACTIONS (4)
  - Foetal exposure during pregnancy [Unknown]
  - Infantile vomiting [Recovered/Resolved]
  - Atrial septal defect [Unknown]
  - Atrial septal defect [Not Recovered/Not Resolved]
